FAERS Safety Report 13284081 (Version 1)
Quarter: 2017Q1

REPORT INFORMATION
  Report Type: Spontaneous
  Country: US (occurrence: US)
  Receive Date: 20170301
  Receipt Date: 20170301
  Transmission Date: 20170428
  Serious: Yes (Other)
  Sender: FDA-Public Use
  Company Number: US-TEVA-742947USA

PATIENT
  Sex: Female

DRUGS (6)
  1. METFORMIN [Concomitant]
     Active Substance: METFORMIN HYDROCHLORIDE
  2. MONTELUKAST [Concomitant]
     Active Substance: MONTELUKAST SODIUM
  3. COPAXONE [Suspect]
     Active Substance: GLATIRAMER ACETATE
     Indication: MULTIPLE SCLEROSIS
     Route: 058
     Dates: start: 20140918
  4. ASPIRIN. [Concomitant]
     Active Substance: ASPIRIN
  5. LEVOTHYROXINE. [Concomitant]
     Active Substance: LEVOTHYROXINE
  6. FOSINOPRIL [Concomitant]
     Active Substance: FOSINOPRIL

REACTIONS (3)
  - Multiple sclerosis relapse [Unknown]
  - Hypoaesthesia [Unknown]
  - Paraesthesia [Unknown]
